FAERS Safety Report 6106713-8 (Version None)
Quarter: 2009Q1

REPORT INFORMATION
  Report Type: 
  Country: None (occurrence: None)
  Receive Date: 20090305
  Receipt Date: 20090223
  Transmission Date: 20090719
  Serious: Yes (Hospitalization, Other)
  Sender: FDA-Public Use
  Company Number: A-NJ2009-23848

PATIENT
  Age: 83 Year
  Sex: Female
  Weight: 64.4 kg

DRUGS (2)
  1. TRACLEER [Suspect]
     Indication: PULMONARY HYPERTENSION
     Dosage: 62.5 MG, BID, ORAL; 62.5 MG, QD, ORAL
     Route: 048
     Dates: start: 20081119, end: 20081201
  2. TRACLEER [Suspect]
     Indication: PULMONARY HYPERTENSION
     Dosage: 62.5 MG, BID, ORAL; 62.5 MG, QD, ORAL
     Route: 048
     Dates: start: 20061202, end: 20090204

REACTIONS (5)
  - CARDIAC FAILURE CONGESTIVE [None]
  - CONDITION AGGRAVATED [None]
  - OFF LABEL USE [None]
  - PNEUMONIA [None]
  - PULMONARY VENO-OCCLUSIVE DISEASE [None]
